FAERS Safety Report 7710219-X (Version None)
Quarter: 2011Q3

REPORT INFORMATION
  Report Type: 
  Country: None (occurrence: None)
  Receive Date: 20110825
  Receipt Date: 20110818
  Transmission Date: 20111222
  Serious: Yes (Other)
  Sender: FDA-Public Use
  Company Number: US-PFIZER INC-2007035973

PATIENT
  Sex: Female

DRUGS (2)
  1. NEURONTIN [Suspect]
     Indication: HYPOAESTHESIA
  2. NEURONTIN [Suspect]
     Indication: NEUROPATHY PERIPHERAL
     Dosage: 100MG AND 400MG
     Dates: start: 20020128

REACTIONS (5)
  - AMNESIA [None]
  - THINKING ABNORMAL [None]
  - HEPATOCELLULAR INJURY [None]
  - SUICIDAL IDEATION [None]
  - DRUG INEFFECTIVE FOR UNAPPROVED INDICATION [None]
